FAERS Safety Report 8868248 (Version 1)
Quarter: 2012Q4

REPORT INFORMATION
  Report Type: 
  Country: US (occurrence: US)
  Receive Date: 20121026
  Receipt Date: 20121026
  Transmission Date: 20130627
  Serious: No
  Sender: FDA-Public Use
  Company Number: US-AMGEN-USASP2012040121

PATIENT
  Age: 73 Year
  Sex: Female
  Weight: 61.22 kg

DRUGS (5)
  1. ENBREL [Suspect]
     Indication: PRODUCT USED FOR UNKNOWN INDICATION
     Dosage: 50 mg, qwk
     Route: 058
  2. FOLIC ACID [Concomitant]
     Dosage: 1 mg, UNK
  3. VITAMIN B COMPLEX [Concomitant]
     Dosage: UNK
  4. CALCIUM + VITAMIN D                /01483701/ [Concomitant]
     Dosage: UNK
  5. OMEGA                              /00661201/ [Concomitant]
     Dosage: 1000 mg, UNK

REACTIONS (5)
  - Oral pain [Recovered/Resolved]
  - Injection site reaction [Unknown]
  - Injection site erythema [Unknown]
  - Injection site swelling [Unknown]
  - Injection site pain [Unknown]
